FAERS Safety Report 4910050-4 (Version None)
Quarter: 2006Q1

REPORT INFORMATION
  Report Type: 
  Country: None (occurrence: None)
  Receive Date: 20060208
  Receipt Date: 20060125
  Transmission Date: 20060701
  Serious: Yes (Other)
  Sender: FDA-Public Use
  Company Number: 2006BH001335

PATIENT
  Sex: Female

DRUGS (3)
  1. METHYLPREDNISOLONE [Suspect]
     Indication: BREAST CANCER METASTATIC
     Dosage: 40 MG; IV
     Route: 042
  2. VINORELBINE TARTRATE [Suspect]
     Indication: BREAST CANCER METASTATIC
     Dosage: 15 MG/M**2; IV
     Route: 042
  3. DOCETAXEL              (DOCETAXEL) [Suspect]
     Indication: BREAST CANCER METASTATIC
     Dosage: 25 MG/M**2; IV
     Route: 042

REACTIONS (3)
  - FEBRILE NEUTROPENIA [None]
  - NEUTROPENIC INFECTION [None]
  - SUDDEN DEATH [None]
